FAERS Safety Report 17417711 (Version 1)
Quarter: 2020Q1

REPORT INFORMATION
  Report Type: Spontaneous
  Country: ID (occurrence: ID)
  Receive Date: 20200214
  Receipt Date: 20200214
  Transmission Date: 20200409
  Serious: Yes (Hospitalization, Other)
  Sender: FDA-Public Use
  Company Number: ID-ASTRAZENECA-2020SE21820

PATIENT
  Age: 57 Year
  Sex: Male

DRUGS (2)
  1. BRILINTA [Suspect]
     Active Substance: TICAGRELOR
     Dosage: UNKNOWN
     Route: 048
  2. BRILINTA [Suspect]
     Active Substance: TICAGRELOR
     Dosage: UNKNOWN
     Route: 048

REACTIONS (4)
  - Acute myocardial infarction [Unknown]
  - Product dose omission [Recovered/Resolved]
  - Vascular stent thrombosis [Unknown]
  - Angina pectoris [Unknown]
